FAERS Safety Report 10249496 (Version 1)
Quarter: 2014Q2

REPORT INFORMATION
  Report Type: Spontaneous
  Country: BE (occurrence: BE)
  Receive Date: 20140620
  Receipt Date: 20140620
  Transmission Date: 20141212
  Serious: Yes (Life-Threatening, Other)
  Sender: FDA-Public Use
  Company Number: BE-PFIZER INC-2014168218

PATIENT
  Sex: 0

DRUGS (1)
  1. SOLU-MEDROL [Suspect]
     Indication: PROPHYLAXIS OF NAUSEA AND VOMITING
     Dosage: 40 MG, UNK
     Route: 042

REACTIONS (1)
  - Anaphylactic shock [Unknown]
